FAERS Safety Report 13210728 (Version 1)
Quarter: 2017Q1

REPORT INFORMATION
  Report Type: Spontaneous
  Country: US (occurrence: US)
  Receive Date: 20170209
  Receipt Date: 20170209
  Transmission Date: 20170428
  Serious: No
  Sender: FDA-Public Use
  Company Number: US-ALLERGAN-1625232US

PATIENT
  Age: 52 Year
  Sex: Female

DRUGS (3)
  1. BOTOX COSMETIC [Suspect]
     Active Substance: ONABOTULINUMTOXINA
     Indication: SKIN WRINKLING
     Dosage: 18 UNITS, SINGLE
     Route: 030
  2. TRICAINE [Concomitant]
     Indication: ANAESTHETIC PREMEDICATION
     Dosage: UNK
     Dates: start: 20160215, end: 20160215
  3. BOTOX COSMETIC [Suspect]
     Active Substance: ONABOTULINUMTOXINA
     Indication: SKIN WRINKLING
     Dosage: 20 UNITS, SINGLE
     Route: 030

REACTIONS (6)
  - Nausea [Recovered/Resolved]
  - Night sweats [Recovered/Resolved]
  - Eye pain [Recovered/Resolved]
  - Musculoskeletal discomfort [Recovered/Resolved]
  - Hypersensitivity [Unknown]
  - Feeling abnormal [Recovered/Resolved]

NARRATIVE: CASE EVENT DATE: 20160215
